FAERS Safety Report 8388205-9 (Version None)
Quarter: 2012Q2

REPORT INFORMATION
  Report Type: 
  Country: None (occurrence: None)
  Receive Date: 20120525
  Receipt Date: 20120516
  Transmission Date: 20120825
  Serious: Yes (Other)
  Sender: FDA-Public Use
  Company Number: US-ASTRAZENECA-2012SE31423

PATIENT
  Age: 75 Year
  Sex: Female
  Weight: 77.1 kg

DRUGS (6)
  1. TOPROL-XL [Suspect]
     Route: 048
  2. DIOVAN HCT [Concomitant]
     Indication: HYPERTENSION
     Dates: start: 20030101
  3. CIPROFLOXACIN HCL [Concomitant]
     Indication: INFECTION
  4. DEXILANT [Concomitant]
     Indication: BARRETT'S OESOPHAGUS
  5. TOPROL-XL [Suspect]
     Indication: HYPERTENSION
     Route: 048
     Dates: start: 19990101
  6. TOPROL-XL [Suspect]
     Route: 048

REACTIONS (9)
  - BARRETT'S OESOPHAGUS [None]
  - INTERVERTEBRAL DISC PROTRUSION [None]
  - RHINORRHOEA [None]
  - COUGH [None]
  - ARTHRITIS [None]
  - DIARRHOEA [None]
  - FEELING OF BODY TEMPERATURE CHANGE [None]
  - INFECTION [None]
  - BLADDER CANCER [None]
